FAERS Safety Report 5851580-0 (Version None)
Quarter: 2008Q3

REPORT INFORMATION
  Report Type: 
  Country: None (occurrence: None)
  Receive Date: 20080820
  Receipt Date: 20080818
  Transmission Date: 20090109
  Serious: Yes (Death, Life-Threatening)
  Sender: FDA-Public Use
  Company Number: JP-SANOFI-SYNTHELABO-A01200808848

PATIENT
  Sex: Male
  Weight: 60 kg

DRUGS (5)
  1. NORVASC [Concomitant]
     Indication: HYPERTENSION
     Route: 048
     Dates: start: 20080708, end: 20080723
  2. GLUCOBAY [Concomitant]
     Indication: DIABETES MELLITUS
     Route: 048
     Dates: start: 20080614, end: 20080723
  3. GLUFAST [Concomitant]
     Indication: DIABETES MELLITUS
     Route: 048
     Dates: start: 20080614, end: 20080723
  4. PLAVIX [Suspect]
     Indication: BRAIN STEM INFARCTION
     Route: 048
     Dates: start: 20080619, end: 20080722
  5. PLAVIX [Suspect]
     Dosage: 50 MG
     Route: 048
     Dates: start: 20080723, end: 20080723

REACTIONS (5)
  - CEREBELLAR INFARCTION [None]
  - DRUG INEFFECTIVE [None]
  - EPISTAXIS [None]
  - LOSS OF CONSCIOUSNESS [None]
  - MOUTH HAEMORRHAGE [None]
